FAERS Safety Report 16297942 (Version 3)
Quarter: 2019Q4

REPORT INFORMATION
  Report Type: Spontaneous
  Country: US (occurrence: US)
  Receive Date: 20190510
  Receipt Date: 20191202
  Transmission Date: 20200122
  Serious: Yes (Other)
  Sender: FDA-Public Use
  Company Number: US-GLAXOSMITHKLINE-US2019079213

PATIENT
  Sex: Male

DRUGS (5)
  1. COREG [Suspect]
     Active Substance: CARVEDILOL
     Indication: CARDIAC FAILURE CONGESTIVE
     Dosage: 25 MG, BID
     Route: 065
  2. COREG CR [Suspect]
     Active Substance: CARVEDILOL PHOSPHATE
     Indication: CARDIAC FAILURE CONGESTIVE
     Dosage: 80 MG, QD
     Dates: start: 2005
  3. CARVEDILOL TABLET [Suspect]
     Active Substance: CARVEDILOL
     Dosage: 12.5 MG MORNING AND 25 MG EVENING
  4. CARVEDILOL TABLET [Suspect]
     Active Substance: CARVEDILOL
     Indication: CARDIAC FAILURE CONGESTIVE
     Dosage: 25 MG, BID
  5. METOPROLOL. [Suspect]
     Active Substance: METOPROLOL
     Indication: CARDIAC FAILURE CONGESTIVE
     Dosage: UNK
     Route: 065

REACTIONS (18)
  - Fall [Unknown]
  - Chest pain [Recovered/Resolved]
  - Asthenia [Not Recovered/Not Resolved]
  - Orthostatic hypotension [Unknown]
  - Dyspnoea [Not Recovered/Not Resolved]
  - Hypotension [Unknown]
  - Drug ineffective [Unknown]
  - Cardiac failure congestive [Unknown]
  - Heart rate decreased [Unknown]
  - Cardiac disorder [Unknown]
  - Dizziness [Unknown]
  - Tremor [Unknown]
  - Product dose omission [Unknown]
  - Myoclonic epilepsy [Unknown]
  - Dialysis [Unknown]
  - Heart rate irregular [Unknown]
  - Insomnia [Unknown]
  - Product availability issue [Unknown]

NARRATIVE: CASE EVENT DATE: 2016
